FAERS Safety Report 7451183-0 (Version None)
Quarter: 2011Q2

REPORT INFORMATION
  Report Type: 
  Country: None (occurrence: None)
  Receive Date: 20110502
  Receipt Date: 20110425
  Transmission Date: 20111010
  Serious: Yes (Other)
  Sender: FDA-Public Use
  Company Number: PHHY2011US23859

PATIENT
  Sex: Male

DRUGS (6)
  1. GLYBURIDE [Concomitant]
  2. JANUVIA [Concomitant]
  3. ASPIRIN [Concomitant]
     Dosage: 81 MG, UNK
  4. DIOVAN [Suspect]
     Indication: HYPERTENSION
     Dosage: 160 MG, QD
     Route: 048
  5. LIPITOR [Concomitant]
  6. FISH OIL [Concomitant]

REACTIONS (7)
  - OXYGEN CONSUMPTION DECREASED [None]
  - CHILLS [None]
  - URTICARIA [None]
  - SYNCOPE [None]
  - LOSS OF CONSCIOUSNESS [None]
  - DERMATITIS [None]
  - HYPOTENSION [None]
